FAERS Safety Report 26191844 (Version 1)
Quarter: 2025Q4

REPORT INFORMATION
  Report Type: Report from Study
  Country: AU (occurrence: AU)
  Receive Date: 20251223
  Receipt Date: 20251223
  Transmission Date: 20260118
  Serious: Yes (Other)
  Sender: VERTEX
  Company Number: AU-VERTEX PHARMACEUTICALS-2025-021885

PATIENT
  Age: 3 Year
  Sex: Male
  Weight: 19 kg

DRUGS (1)
  1. TRIKAFTA [Suspect]
     Active Substance: ELEXACAFTOR\IVACAFTOR\TEZACAFTOR
     Indication: Cystic fibrosis
     Dosage: UNK
     Route: 061
     Dates: start: 20241121, end: 20251201

REACTIONS (4)
  - Sleep disorder [Recovering/Resolving]
  - Aggression [Recovering/Resolving]
  - Nightmare [Recovering/Resolving]
  - Anger [Recovering/Resolving]

NARRATIVE: CASE EVENT DATE: 20241101
